FAERS Safety Report 18851222 (Version 1)
Quarter: 2021Q1

REPORT INFORMATION
  Report Type: Spontaneous
  Country: US (occurrence: US)
  Receive Date: 20210204
  Receipt Date: 20210204
  Transmission Date: 20210420
  Serious: Yes (Disabling)
  Sender: FDA-Public Use
  Company Number: None

PATIENT
  Age: 67 Year
  Sex: Female
  Weight: 78.75 kg

DRUGS (5)
  1. MULTI  VITAMINS [Concomitant]
     Active Substance: VITAMINS
  2. LISINOPRIL. [Concomitant]
     Active Substance: LISINOPRIL
  3. SYNTHROID [Concomitant]
     Active Substance: LEVOTHYROXINE SODIUM
  4. ASPIRIN. [Concomitant]
     Active Substance: ASPIRIN
  5. ATENOLOL 50 MG TAB UNIC [Suspect]
     Active Substance: ATENOLOL
     Indication: HYPERTENSION
     Dosage: QUANTITY:180 TABLET(S);?
     Route: 048
     Dates: start: 20210104, end: 20210116

REACTIONS (4)
  - Hypertension [None]
  - Product substitution issue [None]
  - Drug ineffective [None]
  - Transient ischaemic attack [None]

NARRATIVE: CASE EVENT DATE: 20210104
